FAERS Safety Report 12257548 (Version 2)
Quarter: 2017Q1

REPORT INFORMATION
  Report Type: Report from Study
  Country: CA (occurrence: CA)
  Receive Date: 20160412
  Receipt Date: 20170324
  Transmission Date: 20170428
  Serious: Yes (Other)
  Sender: FDA-Public Use
  Company Number: PHHY2014CA050489

PATIENT
  Age: 64 Year
  Sex: Female

DRUGS (5)
  1. ACLASTA [Suspect]
     Active Substance: ZOLEDRONIC ACID
     Dosage: 5 MG, UNK
     Route: 042
     Dates: start: 20130416
  2. ACLASTA [Suspect]
     Active Substance: ZOLEDRONIC ACID
     Dosage: 5 MG, UNK
     Route: 042
     Dates: start: 20140415
  3. ACLASTA [Suspect]
     Active Substance: ZOLEDRONIC ACID
     Indication: OSTEOPOROSIS
     Dosage: 5 MG, UNK
     Route: 042
     Dates: start: 20120110
  4. ACLASTA [Suspect]
     Active Substance: ZOLEDRONIC ACID
     Dosage: 5 MG, UNK
     Route: 042
     Dates: start: 20160419
  5. ACLASTA [Suspect]
     Active Substance: ZOLEDRONIC ACID
     Dosage: 5 MG, UNK
     Route: 042
     Dates: start: 20150422

REACTIONS (8)
  - Neoplasm malignant [Unknown]
  - Pneumonia [Recovered/Resolved]
  - Feeling abnormal [Unknown]
  - Cold sweat [Unknown]
  - Nerve compression [Unknown]
  - Creatinine renal clearance decreased [Unknown]
  - Influenza like illness [Unknown]
  - Musculoskeletal pain [Unknown]

NARRATIVE: CASE EVENT DATE: 20131119
